FAERS Safety Report 12411992 (Version 5)
Quarter: 2017Q2

REPORT INFORMATION
  Report Type: Report from Study
  Country: NL (occurrence: NL)
  Receive Date: 20160527
  Receipt Date: 20170417
  Transmission Date: 20170830
  Serious: Yes (Other)
  Sender: FDA-Public Use
  Company Number: NL-SUN PHARMACEUTICAL INDUSTRIES LTD-2016RR-117412

PATIENT
  Sex: Male

DRUGS (3)
  1. CARBOPLATIN. [Suspect]
     Active Substance: CARBOPLATIN
     Indication: CONGENITAL RETINOBLASTOMA
     Dosage: CYCLICAL, CUMULATIVE DOSE 1805 MG/M^2, 4 COURSES
     Route: 065
  2. GENTAMICIN. [Interacting]
     Active Substance: GENTAMICIN
     Indication: SEPSIS
     Dosage: UNK
     Route: 065
     Dates: start: 19990318, end: 19990328
  3. VANCOMYCIN [Concomitant]
     Active Substance: VANCOMYCIN
     Indication: SEPSIS
     Dosage: UNK
     Route: 065
     Dates: start: 19990314, end: 19990317

REACTIONS (2)
  - Drug interaction [Unknown]
  - Deafness bilateral [Unknown]

NARRATIVE: CASE EVENT DATE: 20060505
